FAERS Safety Report 4585345-7 (Version None)
Quarter: 2005Q1

REPORT INFORMATION
  Report Type: 
  Country: None (occurrence: None)
  Receive Date: 20050214
  Receipt Date: 20050207
  Transmission Date: 20050727
  Serious: Yes (Life-Threatening)
  Sender: FDA-Public Use
  Company Number: 805#1#2005-00005

PATIENT
  Age: 60 Year
  Sex: Female

DRUGS (1)
  1. ALPROSTADIL [Suspect]
     Indication: DIABETIC GANGRENE
     Dosage: 120 MCG INTRAVENOUS DRIP; 60 MCG INTRAVENOUS DRIP
     Route: 041
     Dates: start: 20050114, end: 20050128

REACTIONS (1)
  - ACUTE LEFT VENTRICULAR FAILURE [None]
